FAERS Safety Report 8434013 (Version 2)
Quarter: 2012Q4

REPORT INFORMATION
  Report Type: 
  Country: US (occurrence: US)
  Receive Date: 20120229
  Receipt Date: 20121213
  Transmission Date: 20130627
  Serious: Yes (Other)
  Sender: FDA-Public Use
  Company Number: US-ASTRAZENECA-2012SE01543

PATIENT
  Age: 48 Year
  Sex: Female

DRUGS (3)
  1. NEXIUM [Suspect]
     Route: 048
  2. NEXIUM [Suspect]
     Route: 048
  3. NEXIUM [Suspect]
     Route: 048

REACTIONS (4)
  - Ulcer haemorrhage [Unknown]
  - Gastric disorder [Unknown]
  - Blood pressure increased [Unknown]
  - Inappropriate schedule of drug administration [Unknown]
